FAERS Safety Report 7371797-6 (Version None)
Quarter: 2011Q1

REPORT INFORMATION
  Report Type: 
  Country: None (occurrence: None)
  Receive Date: 20110324
  Receipt Date: 20110310
  Transmission Date: 20110831
  Serious: Yes (Hospitalization)
  Sender: FDA-Public Use
  Company Number: PHHY2011BR20422

PATIENT
  Sex: Male

DRUGS (7)
  1. AAS [Concomitant]
     Indication: ANTICOAGULANT THERAPY
     Dosage: 1 DF, (1 TABLET A DAY)
     Route: 048
  2. DIOVAN AMLO FIX [Suspect]
     Dosage: VALSARTAN 160MG AND AMLODIPINE 5MG, 1 TABLET A DAY
     Route: 048
     Dates: start: 20110310
  3. CAPTOPRIL [Concomitant]
     Indication: BLOOD PRESSURE ABNORMAL
     Dosage: 1 TABLET EVERY 8 HOURS
     Route: 048
  4. CAPTOPRIL [Concomitant]
     Dosage: 2 UNK, (2 TABLETS)
     Route: 048
  5. CLOPIDOGREL [Concomitant]
     Indication: BLOOD PRESSURE ABNORMAL
     Dosage: 1 TABLET EVERY 12 HOURS
     Route: 048
  6. DIOVAN AMLO FIX [Suspect]
     Indication: HYPERTENSION
     Dosage: VALSARTAN 160MG AND AMLODIPINE 5MG, (1 TABLET A DAY)
     Route: 048
     Dates: start: 20090101, end: 20101227
  7. SELOZOK [Concomitant]
     Indication: BLOOD PRESSURE ABNORMAL
     Dosage: 1 TABLET EVERY 12 HOURS
     Route: 048
     Dates: start: 20101231

REACTIONS (4)
  - HYPERTENSION [None]
  - VEIN DISORDER [None]
  - INFARCTION [None]
  - DIZZINESS [None]
